FAERS Safety Report 6983946-X (Version None)
Quarter: 2010Q3

REPORT INFORMATION
  Report Type: 
  Country: None (occurrence: None)
  Receive Date: 20100914
  Receipt Date: 20090331
  Transmission Date: 20110219
  Serious: No
  Sender: FDA-Public Use
  Company Number: US-WYE-H08769509

PATIENT
  Sex: Male

DRUGS (3)
  1. ADVIL PM [Suspect]
     Dosage: UNKNOWN
     Route: 048
  2. XANAX [Concomitant]
  3. TYLENOL PM [Suspect]
     Dosage: UNKNOWN
     Route: 048

REACTIONS (1)
  - HANGOVER [None]
